FAERS Safety Report 8147566-6 (Version None)
Quarter: 2012Q1

REPORT INFORMATION
  Report Type: 
  Country: None (occurrence: None)
  Receive Date: 20120218
  Receipt Date: 20110223
  Transmission Date: 20120608
  Serious: No
  Sender: FDA-Public Use
  Company Number: US-ALLERGAN-1102626US

PATIENT
  Age: 58 Year
  Sex: Female

DRUGS (1)
  1. BOTOX COSMETIC [Suspect]
     Indication: SKIN WRINKLING
     Dosage: 32 UNITS, SINGLE
     Dates: start: 20110216, end: 20110216

REACTIONS (3)
  - INJECTION SITE DISCOLOURATION [None]
  - INJECTION SITE RASH [None]
  - INJECTION SITE PAIN [None]
